FAERS Safety Report 5312028-8 (Version None)
Quarter: 2007Q2

REPORT INFORMATION
  Report Type: 
  Country: None (occurrence: None)
  Receive Date: 20070430
  Receipt Date: 20060622
  Transmission Date: 20071010
  Serious: No
  Sender: FDA-Public Use
  Company Number: 2006UW13222

PATIENT
  Age: 75 Year
  Sex: Male
  Weight: 76.2 kg

DRUGS (3)
  1. NEXIUM [Suspect]
     Indication: GASTROOESOPHAGEAL REFLUX DISEASE
     Route: 048
     Dates: start: 20060612, end: 20060601
  2. VERAPAMIL [Concomitant]
  3. HYTRIN [Concomitant]

REACTIONS (2)
  - MUSCLE SPASMS [None]
  - PAIN IN EXTREMITY [None]
